FAERS Safety Report 19230666 (Version 1)
Quarter: 2021Q2

REPORT INFORMATION
  Report Type: Spontaneous
  Country: US (occurrence: US)
  Receive Date: 20210507
  Receipt Date: 20210507
  Transmission Date: 20210717
  Serious: Yes (Life-Threatening, Hospitalization, Disabling)
  Sender: FDA-Public Use
  Company Number: None

PATIENT
  Age: 62 Year
  Sex: Female
  Weight: 57 kg

DRUGS (1)
  1. EMPAGLIFLOZIN [Suspect]
     Active Substance: EMPAGLIFLOZIN
     Indication: TYPE 2 DIABETES MELLITUS
     Route: 048
     Dates: start: 20200730, end: 20200814

REACTIONS (5)
  - Sepsis [None]
  - Myocardial ischaemia [None]
  - Renal failure [None]
  - Acidosis [None]
  - Haemodialysis [None]

NARRATIVE: CASE EVENT DATE: 20200814
